FAERS Safety Report 16372959 (Version 3)
Quarter: 2020Q3

REPORT INFORMATION
  Report Type: Spontaneous
  Country: ES (occurrence: ES)
  Receive Date: 20190530
  Receipt Date: 20200717
  Transmission Date: 20201102
  Serious: Yes (Hospitalization, Other)
  Sender: FDA-Public Use
  Company Number: ES-TEVA-2019-ES-1054683

PATIENT
  Age: 83 Year
  Sex: Male

DRUGS (1)
  1. OLMESARTAN 40 MG [Suspect]
     Active Substance: OLMESARTAN
     Indication: HYPERTENSION
     Route: 048

REACTIONS (3)
  - Gastrointestinal disorder [Recovered/Resolved]
  - Hypotension [Recovered/Resolved]
  - Renal impairment [Recovered/Resolved]
